FAERS Safety Report 19813538 (Version 1)
Quarter: 2021Q3

REPORT INFORMATION
  Report Type: Spontaneous
  Country: US (occurrence: US)
  Receive Date: 20210909
  Receipt Date: 20210909
  Transmission Date: 20211014
  Serious: Yes (Other)
  Sender: FDA-Public Use
  Company Number: None

PATIENT
  Age: 67 Year
  Sex: Male
  Weight: 111.6 kg

DRUGS (6)
  1. NORVASC [Concomitant]
     Active Substance: AMLODIPINE BESYLATE
  2. IMATINIB. [Suspect]
     Active Substance: IMATINIB MESYLATE
     Indication: CHRONIC MYELOID LEUKAEMIA
     Route: 048
     Dates: start: 20210331
  3. ALLOPURINOL. [Concomitant]
     Active Substance: ALLOPURINOL
  4. LOSARTAN. [Concomitant]
     Active Substance: LOSARTAN
  5. HYDREA [Concomitant]
     Active Substance: HYDROXYUREA
  6. ALBUTEROL HFA [Concomitant]
     Active Substance: ALBUTEROL SULFATE

REACTIONS (2)
  - Abdominal pain upper [None]
  - Nausea [None]

NARRATIVE: CASE EVENT DATE: 20210909
